FAERS Safety Report 18281242 (Version 1)
Quarter: 2020Q3

REPORT INFORMATION
  Report Type: Spontaneous
  Country: CA (occurrence: CA)
  Receive Date: 20200918
  Receipt Date: 20200918
  Transmission Date: 20201103
  Serious: Yes (Other)
  Sender: FDA-Public Use
  Company Number: CA-JNJFOC-20200923909

PATIENT
  Age: 18 Year
  Sex: Female
  Weight: 113 kg

DRUGS (2)
  1. KYLEENA [Suspect]
     Active Substance: LEVONORGESTREL
     Indication: CONTRACEPTION
     Route: 015
  2. TYLENOL 8 HR ARTHRITIS PAIN [Suspect]
     Active Substance: ACETAMINOPHEN
     Indication: PRODUCT USED FOR UNKNOWN INDICATION
     Route: 065

REACTIONS (5)
  - Procedural nausea [Recovered/Resolved]
  - Device physical property issue [Recovered/Resolved]
  - Procedural pain [Recovered/Resolved]
  - Asthenia [Recovered/Resolved]
  - Embedded device [Recovered/Resolved]
